FAERS Safety Report 10144467 (Version 1)
Quarter: 2014Q2

REPORT INFORMATION
  Report Type: Spontaneous
  Country: US (occurrence: US)
  Receive Date: 20140430
  Receipt Date: 20140430
  Transmission Date: 20141212
  Serious: No
  Sender: FDA-Public Use
  Company Number: US-GILEAD-2014-0100798

PATIENT
  Sex: Female

DRUGS (2)
  1. SOVALDI [Suspect]
     Indication: PRODUCT USED FOR UNKNOWN INDICATION
     Dosage: UNK
     Route: 065
     Dates: start: 201402
  2. RIBAVIRIN [Concomitant]
     Dosage: UNK
     Dates: start: 201402

REACTIONS (3)
  - Malaise [Unknown]
  - Fatigue [Unknown]
  - Asthenia [Unknown]
